FAERS Safety Report 9001837 (Version 2)
Quarter: 2013Q1

REPORT INFORMATION
  Report Type: Spontaneous
  Country: CH (occurrence: CH)
  Receive Date: 20130107
  Receipt Date: 20130107
  Transmission Date: 20140127
  Serious: Yes (Hospitalization)
  Sender: FDA-Public Use
  Company Number: CH-TEVA-377838ISR

PATIENT
  Age: 80 Year
  Sex: Female

DRUGS (2)
  1. DICLOFENAC [Suspect]
     Indication: OSTEOARTHRITIS
     Route: 048
  2. ALISKIREN [Concomitant]
     Indication: HYPERTENSION
     Route: 065

REACTIONS (3)
  - Microangiopathic haemolytic anaemia [Recovering/Resolving]
  - Hypertensive crisis [Unknown]
  - Renal failure acute [Not Recovered/Not Resolved]
